FAERS Safety Report 9494138 (Version 2)
Quarter: 2013Q4

REPORT INFORMATION
  Report Type: Spontaneous
  Country: SE (occurrence: SE)
  Receive Date: 20130903
  Receipt Date: 20131022
  Transmission Date: 20140711
  Serious: Yes (Other)
  Sender: FDA-Public Use
  Company Number: PHHY2013SE094794

PATIENT
  Age: 10 Year
  Sex: Female
  Weight: 66 kg

DRUGS (2)
  1. RITALINE [Suspect]
     Indication: ATTENTION DEFICIT/HYPERACTIVITY DISORDER
     Dosage: 20 MG, DAILY
     Route: 065
     Dates: start: 20130816, end: 20130816
  2. RISPERDAL [Suspect]
     Indication: AGGRESSION
     Dosage: 0.5 MG, UNK
     Dates: start: 20090824

REACTIONS (3)
  - Self injurious behaviour [Recovered/Resolved]
  - Disturbance in attention [Recovered/Resolved]
  - Aggression [Recovered/Resolved]
